FAERS Safety Report 15501357 (Version 1)
Quarter: 2018Q4

REPORT INFORMATION
  Report Type: Report from Study
  Country: TW (occurrence: TW)
  Receive Date: 20181015
  Receipt Date: 20181015
  Transmission Date: 20190205
  Serious: Yes (Other)
  Sender: FDA-Public Use
  Company Number: PHHY2018TW125111

PATIENT
  Age: 52 Year
  Sex: Male

DRUGS (2)
  1. COSENTYX [Suspect]
     Active Substance: SECUKINUMAB
     Indication: PSORIASIS
     Dosage: 300 MG, QMO
     Route: 058
     Dates: start: 20180222
  2. SANDIMMUN [Suspect]
     Active Substance: CYCLOSPORINE
     Indication: PSORIASIS
     Dosage: 200 MG, BID
     Route: 048

REACTIONS (4)
  - Hypertension [Unknown]
  - Hypoaesthesia [Unknown]
  - Cerebrovascular accident [Not Recovered/Not Resolved]
  - Asthenia [Unknown]
